FAERS Safety Report 24213366 (Version 1)
Quarter: 2024Q3

REPORT INFORMATION
  Report Type: Report from Study
  Country: CO (occurrence: None)
  Receive Date: 20240815
  Receipt Date: 20240815
  Transmission Date: 20241016
  Serious: Yes (Other)
  Sender: ASTRAZENECA
  Company Number: 2024A184630

PATIENT
  Age: 25593 Day
  Sex: Female
  Weight: 58 kg

DRUGS (1)
  1. FASENRA [Suspect]
     Active Substance: BENRALIZUMAB
     Indication: Asthma
     Route: 058
     Dates: start: 20200305

REACTIONS (1)
  - Biliary tract disorder [Recovering/Resolving]

NARRATIVE: CASE EVENT DATE: 20240715
